FAERS Safety Report 15357682 (Version 1)
Quarter: 2018Q3

REPORT INFORMATION
  Report Type: Report from Study
  Country: US (occurrence: US)
  Receive Date: 20180906
  Receipt Date: 20180906
  Transmission Date: 20181010
  Serious: Yes (Hospitalization)
  Sender: FDA-Public Use
  Company Number: US-ACTELION-A-US2018-178290

PATIENT
  Age: 68 Year
  Sex: Male
  Weight: 83.9 kg

DRUGS (2)
  1. ELIQUIS [Concomitant]
     Active Substance: APIXABAN
  2. UPTRAVI [Suspect]
     Active Substance: SELEXIPAG
     Indication: PULMONARY ARTERIAL HYPERTENSION
     Dosage: 600 MCG, BID
     Route: 048

REACTIONS (6)
  - Vertigo [Unknown]
  - Gait disturbance [Unknown]
  - Asthenia [Unknown]
  - Pneumonia [Unknown]
  - Dizziness [Unknown]
  - Oxygen saturation decreased [Unknown]
